FAERS Safety Report 10794258 (Version 1)
Quarter: 2015Q1

REPORT INFORMATION
  Report Type: Spontaneous
  Country: GB (occurrence: GB)
  Receive Date: 20150213
  Receipt Date: 20150213
  Transmission Date: 20150721
  Serious: Yes (Life-Threatening)
  Sender: FDA-Public Use
  Company Number: PHFR2015GB001386

PATIENT
  Age: 50 Year
  Weight: 81 kg

DRUGS (1)
  1. OCTREOTIDE [Suspect]
     Active Substance: OCTREOTIDE
     Indication: GASTRIC ULCER PERFORATION
     Route: 042
     Dates: start: 20150129, end: 20150129

REACTIONS (3)
  - Apnoea [Recovered/Resolved]
  - Respiratory depression [Recovered/Resolved]
  - Product use issue [Unknown]

NARRATIVE: CASE EVENT DATE: 20150129
